FAERS Safety Report 8309446-2 (Version None)
Quarter: 2012Q2

REPORT INFORMATION
  Report Type: 
  Country: None (occurrence: None)
  Receive Date: 20120424
  Receipt Date: 20120424
  Transmission Date: 20120825
  Serious: Yes (Hospitalization)
  Sender: FDA-Public Use
  Company Number: None

PATIENT
  Age: 70 Year
  Sex: Male
  Weight: 68.6 kg

DRUGS (1)
  1. DALIRESP [Suspect]
     Indication: CHRONIC OBSTRUCTIVE PULMONARY DISEASE
     Dosage: 500MCG DAILY PO
     Route: 048
     Dates: start: 20111201, end: 20120309

REACTIONS (7)
  - ABDOMINAL DISTENSION [None]
  - VENTRICULAR TACHYCARDIA [None]
  - CARDIAC ARREST [None]
  - DIARRHOEA [None]
  - VOMITING [None]
  - DEHYDRATION [None]
  - DIZZINESS [None]
